FAERS Safety Report 24883371 (Version 1)
Quarter: 2025Q1

REPORT INFORMATION
  Report Type: Spontaneous
  Country: US (occurrence: None)
  Receive Date: 20250123
  Receipt Date: 20250123
  Transmission Date: 20250408
  Serious: Yes (Other)
  Sender: FDA-CTU
  Company Number: None

PATIENT
  Age: 70 Year
  Sex: Female
  Weight: 116.1 kg

DRUGS (9)
  1. WEGOVY [Suspect]
     Active Substance: SEMAGLUTIDE
     Indication: Weight decreased
     Route: 050
     Dates: start: 20240506, end: 20250114
  2. HYDROCHLOROTHIAZIDE [Concomitant]
     Active Substance: HYDROCHLOROTHIAZIDE
  3. DOXYCYCLINE [Concomitant]
     Active Substance: DOXYCYCLINE
  4. Vita (B, D3) [Concomitant]
  5. PROBIOTICS NOS [Concomitant]
     Active Substance: PROBIOTICS NOS
  6. GARLIC [Concomitant]
     Active Substance: GARLIC
  7. HERBALS\TURMERIC [Concomitant]
     Active Substance: HERBALS\TURMERIC
  8. UCII Collagen [Concomitant]
  9. CINNAMON [Concomitant]
     Active Substance: CINNAMON

REACTIONS (4)
  - Thyroid mass [None]
  - Cerebellar atrophy [None]
  - Fear [None]
  - Hypothalamo-pituitary disorder [None]

NARRATIVE: CASE EVENT DATE: 20250119
